FAERS Safety Report 25856548 (Version 1)
Quarter: 2025Q3

REPORT INFORMATION
  Report Type: Spontaneous
  Country: CN (occurrence: CN)
  Receive Date: 20250929
  Receipt Date: 20250929
  Transmission Date: 20251021
  Serious: Yes (Other)
  Sender: UCB
  Company Number: CN-UCBSA-2025058284

PATIENT
  Age: 3 Year
  Sex: Female

DRUGS (4)
  1. LEVETIRACETAM [Suspect]
     Active Substance: LEVETIRACETAM
     Indication: Epilepsy
  2. LACOSAMIDE [Suspect]
     Active Substance: LACOSAMIDE
     Indication: Epilepsy
  3. LAMOTRIGINE [Suspect]
     Active Substance: LAMOTRIGINE
     Indication: Epilepsy
  4. VALPROIC ACID [Suspect]
     Active Substance: VALPROIC ACID
     Indication: Epilepsy

REACTIONS (5)
  - Seizure [Unknown]
  - Febrile status epilepticus [Unknown]
  - Partial seizures with secondary generalisation [Unknown]
  - Multiple-drug resistance [Unknown]
  - Off label use [Unknown]
